FAERS Safety Report 8548218-0 (Version None)
Quarter: 2012Q3

REPORT INFORMATION
  Report Type: 
  Country: None (occurrence: None)
  Receive Date: 20120730
  Receipt Date: 20101123
  Transmission Date: 20120928
  Serious: Yes (Hospitalization, Other)
  Sender: FDA-Public Use
  Company Number: US-BAYER-201038110NA

PATIENT
  Age: 27 Year
  Sex: Female
  Weight: 80 kg

DRUGS (8)
  1. PROMETHAZINE [Concomitant]
     Dosage: 20 MG, UNK
     Route: 048
     Dates: start: 20040929
  2. ERYTHROMYCIN [Concomitant]
     Dosage: 400 MG, UNK
     Route: 048
     Dates: start: 20040929
  3. YASMIN [Suspect]
     Indication: ACNE
     Dosage: UNK
     Dates: start: 20040914, end: 20041125
  4. TETRACYCLINE [Concomitant]
     Dosage: 500 MG, UNK
     Route: 048
     Dates: start: 20041007, end: 20041116
  5. DROSPIRENONE AND ETHINYL ESTRADIOL [Suspect]
     Indication: ACNE
  6. NEXIUM [Concomitant]
     Dosage: 40 MG, UNK
     Route: 048
     Dates: start: 20041117
  7. YAZ [Suspect]
     Indication: ACNE
  8. YASMIN [Suspect]
     Indication: CONTRACEPTION

REACTIONS (15)
  - PARAESTHESIA [None]
  - CHEST PAIN [None]
  - NIGHT SWEATS [None]
  - DYSPNOEA [None]
  - HEADACHE [None]
  - MUSCLE SPASMS [None]
  - CHILLS [None]
  - ASTHENIA [None]
  - HYPOAESTHESIA [None]
  - PULMONARY EMBOLISM [None]
  - FLANK PAIN [None]
  - REFLUX GASTRITIS [None]
  - TACHYCARDIA [None]
  - DIZZINESS [None]
  - BLOOD PRESSURE INCREASED [None]
